FAERS Safety Report 17591762 (Version 2)
Quarter: 2020Q2

REPORT INFORMATION
  Report Type: Spontaneous
  Country: JP (occurrence: JP)
  Receive Date: 20200327
  Receipt Date: 20200522
  Transmission Date: 20200713
  Serious: Yes (Death, Other)
  Sender: FDA-Public Use
  Company Number: JP-ASTRAZENECA-2020SE42644

PATIENT
  Age: 82 Year
  Sex: Male
  Weight: 50 kg

DRUGS (14)
  1. EFIENT [Suspect]
     Active Substance: PRASUGREL HYDROCHLORIDE
     Route: 065
     Dates: start: 20200206
  2. ENALAPRIL [Concomitant]
     Active Substance: ENALAPRIL
     Route: 065
  3. ROSUVASTATIN. [Suspect]
     Active Substance: ROSUVASTATIN
     Indication: DYSLIPIDAEMIA
     Route: 048
     Dates: start: 20200207, end: 20200212
  4. BAYASPIRIN [Suspect]
     Active Substance: ASPIRIN
     Route: 065
  5. CORALAN [Suspect]
     Active Substance: IVABRADINE HYDROCHLORIDE
     Indication: ACUTE CORONARY SYNDROME
     Route: 048
     Dates: start: 20200207, end: 20200221
  6. NICORANDIL [Concomitant]
     Active Substance: NICORANDIL
     Route: 065
  7. THYRADIN [Concomitant]
     Active Substance: LEVOTHYROXINE
     Route: 065
  8. TAKECAB [Suspect]
     Active Substance: VONOPRAZAN FUMARATE
     Indication: PROPHYLAXIS AGAINST GASTROINTESTINAL ULCER
     Route: 048
     Dates: start: 20200206, end: 20200210
  9. BISONO [Concomitant]
     Active Substance: BISOPROLOL
     Route: 065
  10. LUNESTA [Concomitant]
     Active Substance: ESZOPICLONE
     Route: 065
  11. SULBACILLIN [Concomitant]
     Active Substance: AMPICILLIN SODIUM\SULBACTAM SODIUM
     Route: 065
  12. QUETIAPINE. [Concomitant]
     Active Substance: QUETIAPINE
     Route: 048
     Dates: start: 20200206
  13. XARELTO [Concomitant]
     Active Substance: RIVAROXABAN
     Route: 065
     Dates: start: 20200207
  14. LEVOTHYROXINE SODIUM HYDRATE [Concomitant]
     Active Substance: LEVOTHYROXINE SODIUM
     Route: 065

REACTIONS (2)
  - Lung disorder [Not Recovered/Not Resolved]
  - Pulmonary alveolar haemorrhage [Not Recovered/Not Resolved]

NARRATIVE: CASE EVENT DATE: 20200207
